FAERS Safety Report 24131617 (Version 4)
Quarter: 2024Q3

REPORT INFORMATION
  Report Type: Spontaneous
  Country: US (occurrence: US)
  Receive Date: 20240724
  Receipt Date: 20240812
  Transmission Date: 20241016
  Serious: Yes (Other)
  Sender: BAYER
  Company Number: US-BAYER-2024A104393

PATIENT
  Age: 20 Year
  Sex: Female

DRUGS (1)
  1. KYLEENA [Suspect]
     Active Substance: LEVONORGESTREL
     Indication: Contraception
     Dosage: 17.5?G/DAY
     Route: 015
     Dates: start: 20230612, end: 20240625

REACTIONS (5)
  - Device breakage [None]
  - Genital haemorrhage [Recovering/Resolving]
  - Procedural pain [Recovering/Resolving]
  - Device dislocation [Recovering/Resolving]
  - Complication of device removal [None]

NARRATIVE: CASE EVENT DATE: 20230614
